FAERS Safety Report 23322395 (Version 1)
Quarter: 2023Q4

REPORT INFORMATION
  Report Type: Spontaneous
  Country: US (occurrence: None)
  Receive Date: 20231220
  Receipt Date: 20231220
  Transmission Date: 20240110
  Serious: No
  Sender: FDA-Public Use
  Company Number: None

PATIENT
  Sex: Male

DRUGS (1)
  1. VYNDAMAX [Suspect]
     Active Substance: TAFAMIDIS
     Indication: Illness
     Dosage: 61MG DAILY ORAL?
     Route: 048
     Dates: start: 202307

REACTIONS (3)
  - Blood potassium decreased [None]
  - Malnutrition [None]
  - Treatment noncompliance [None]
